FAERS Safety Report 9190187 (Version 2)
Quarter: 2014Q2

REPORT INFORMATION
  Report Type: Spontaneous
  Country: US (occurrence: US)
  Receive Date: 20130326
  Receipt Date: 20140530
  Transmission Date: 20141212
  Serious: Yes (Hospitalization)
  Sender: FDA-Public Use
  Company Number: US-BAYER-2013-035123

PATIENT
  Age: 40 Year
  Sex: Female

DRUGS (3)
  1. YASMIN [Suspect]
     Route: 048
  2. VICODIN [Concomitant]
     Indication: PAIN IN EXTREMITY
  3. LEXAPRO [Concomitant]

REACTIONS (6)
  - Pulmonary embolism [None]
  - Deep vein thrombosis [None]
  - Deep vein thrombosis [None]
  - Thrombophlebitis superficial [None]
  - Depression [None]
  - Pain [None]
